FAERS Safety Report 5241189-4 (Version None)
Quarter: 2007Q1

REPORT INFORMATION
  Report Type: 
  Country: None (occurrence: None)
  Receive Date: 20070220
  Receipt Date: 20070207
  Transmission Date: 20070707
  Serious: Yes (Other)
  Sender: FDA-Public Use
  Company Number: PHEH2007US01184

PATIENT
  Sex: Male
  Weight: 98.866 kg

DRUGS (4)
  1. LOTREL [Concomitant]
     Indication: HYPERTENSION
     Dosage: 5/10MG, UNK
     Dates: start: 20070101
  2. SYNTHROID [Concomitant]
     Indication: THYROID DISORDER
  3. VYTORIN [Concomitant]
     Indication: BLOOD CHOLESTEROL INCREASED
     Dosage: UNK, UNK
  4. DIOVAN HCT [Suspect]
     Indication: HYPERTENSION
     Dates: start: 20061220

REACTIONS (4)
  - BLOOD PRESSURE INADEQUATELY CONTROLLED [None]
  - BLOOD PRESSURE INCREASED [None]
  - DRUG INEFFECTIVE [None]
  - TRANSIENT ISCHAEMIC ATTACK [None]
